FAERS Safety Report 17038567 (Version 2)
Quarter: 2019Q4

REPORT INFORMATION
  Report Type: Spontaneous
  Country: JP (occurrence: JP)
  Receive Date: 20191115
  Receipt Date: 20191119
  Transmission Date: 20200122
  Serious: Yes (Death, Life-Threatening, Hospitalization, Other)
  Sender: FDA-Public Use
  Company Number: JP-ASTRAZENECA-2019SF62314

PATIENT
  Age: 27455 Day
  Sex: Male
  Weight: 59 kg

DRUGS (13)
  1. HEPARINOID [Concomitant]
     Active Substance: CHONDROITIN SULFATE (BOVINE)
     Indication: ATRIAL FIBRILLATION
     Dosage: DOSE UNKNOWN
     Route: 041
     Dates: start: 20180823
  2. IMFINZI [Suspect]
     Active Substance: DURVALUMAB
     Indication: NON-SMALL CELL LUNG CANCER
     Route: 042
     Dates: start: 20190107, end: 20190617
  3. WARFARIN [Concomitant]
     Active Substance: WARFARIN
     Indication: ATRIAL FIBRILLATION
     Route: 048
     Dates: end: 20180823
  4. CARVEDILOL. [Concomitant]
     Active Substance: CARVEDILOL
     Indication: ANGINA PECTORIS
     Route: 048
  5. HALFDIGOXIN [Concomitant]
     Active Substance: DIGOXIN
     Indication: ATRIAL FIBRILLATION
     Route: 048
  6. CLOPIDOGREL [Concomitant]
     Active Substance: CLOPIDOGREL BISULFATE
     Indication: ANGINA PECTORIS
     Route: 048
     Dates: end: 20180818
  7. GLIMEPIRIDE. [Concomitant]
     Active Substance: GLIMEPIRIDE
     Indication: TYPE 2 DIABETES MELLITUS
     Route: 048
     Dates: start: 20150518, end: 20190903
  8. ALLOPURINOL. [Concomitant]
     Active Substance: ALLOPURINOL
     Indication: HYPERURICAEMIA
     Route: 048
  9. AZOSEMIDE [Concomitant]
     Active Substance: AZOSEMIDE
     Indication: CARDIAC FAILURE CONGESTIVE
     Route: 048
     Dates: start: 20181014, end: 20190903
  10. ROSUVASTATIN. [Concomitant]
     Active Substance: ROSUVASTATIN
     Indication: DYSLIPIDAEMIA
     Route: 048
  11. SPIRONOLACTONE. [Concomitant]
     Active Substance: SPIRONOLACTONE
     Indication: CARDIAC FAILURE CONGESTIVE
     Route: 048
     Dates: start: 20181011, end: 20190903
  12. OLMESARTAN OD [Concomitant]
     Active Substance: OLMESARTAN MEDOXOMIL
     Indication: ANGINA PECTORIS
     Route: 048
  13. FUROSEMIDE. [Concomitant]
     Active Substance: FUROSEMIDE
     Indication: CARDIAC FAILURE CONGESTIVE
     Route: 048
     Dates: start: 20181018, end: 20190903

REACTIONS (6)
  - Seizure [Unknown]
  - Pneumonia bacterial [Unknown]
  - Lung disorder [Recovering/Resolving]
  - Cardiac failure congestive [Fatal]
  - Taste disorder [Not Recovered/Not Resolved]
  - Cardio-respiratory arrest [Unknown]

NARRATIVE: CASE EVENT DATE: 20190408
